FAERS Safety Report 7379102-6 (Version None)
Quarter: 2011Q1

REPORT INFORMATION
  Report Type: 
  Country: None (occurrence: None)
  Receive Date: 20110328
  Receipt Date: 20110324
  Transmission Date: 20110831
  Serious: Yes (Death, Hospitalization)
  Sender: FDA-Public Use
  Company Number: DE-PFIZER INC-2011066519

PATIENT
  Age: 70 Year
  Sex: Female

DRUGS (2)
  1. TORISEL [Suspect]
     Indication: MANTLE CELL LYMPHOMA
     Dosage: 175 MG, 3X/DAY
  2. TORISEL [Suspect]
     Dosage: 75 MG, UNK

REACTIONS (1)
  - LUNG DISORDER [None]
